FAERS Safety Report 4787588-6 (Version None)
Quarter: 2005Q3

REPORT INFORMATION
  Report Type: 
  Country: None (occurrence: None)
  Receive Date: 20050914
  Receipt Date: 20050201
  Transmission Date: 20060218
  Serious: Yes (Hospitalization)
  Sender: FDA-Public Use
  Company Number: 163-20785-05020032

PATIENT
  Age: 56 Year
  Sex: Male
  Weight: 87 kg

DRUGS (14)
  1. THALOMID [Suspect]
     Indication: MULTIPLE MYELOMA
     Dosage: SEE IMAGE
     Route: 048
     Dates: start: 20041207, end: 20041210
  2. THALOMID [Suspect]
     Indication: MULTIPLE MYELOMA
     Dosage: SEE IMAGE
     Route: 048
     Dates: start: 20050113, end: 20050129
  3. PROCRIT [Suspect]
     Indication: ANAEMIA
     Dosage: 40,000 IU, WEEKLY, SUBCUTANEOUS
     Route: 058
     Dates: start: 20041203, end: 20041213
  4. VELCADE [Suspect]
     Indication: MULTIPLE MYELOMA
     Dosage: SEE IMAGE
     Dates: start: 20041204, end: 20041204
  5. VELCADE [Suspect]
     Indication: MULTIPLE MYELOMA
     Dosage: SEE IMAGE
     Dates: start: 20041207, end: 20041207
  6. VELCADE [Suspect]
     Indication: MULTIPLE MYELOMA
     Dosage: SEE IMAGE
     Dates: start: 20041211, end: 20041211
  7. VELCADE [Suspect]
     Indication: MULTIPLE MYELOMA
     Dosage: SEE IMAGE
     Dates: start: 20041213, end: 20041213
  8. VELCADE [Suspect]
     Indication: MULTIPLE MYELOMA
     Dosage: SEE IMAGE
     Dates: start: 20041214, end: 20041214
  9. DEXAMETHASONE [Suspect]
     Indication: MULTIPLE MYELOMA
     Dosage: SEE IMAGE
     Route: 048
     Dates: start: 20041207, end: 20041210
  10. DEXAMETHASONE [Suspect]
     Indication: MULTIPLE MYELOMA
     Dosage: SEE IMAGE
     Route: 048
     Dates: start: 20050117, end: 20050120
  11. ADRIAMYCIN PFS [Suspect]
     Indication: MULTIPLE MYELOMA
  12. CYCLOPHOSPHAMIDE [Suspect]
     Indication: MULTIPLE MYELOMA
  13. ETOPOSIDE [Suspect]
     Indication: MULTIPLE MYELOMA
  14. CISPLATIN [Suspect]
     Indication: MULTIPLE MYELOMA

REACTIONS (3)
  - FEBRILE NEUTROPENIA [None]
  - NAUSEA [None]
  - VOMITING [None]
